FAERS Safety Report 20178879 (Version 1)
Quarter: 2021Q4

REPORT INFORMATION
  Report Type: Spontaneous
  Country: US (occurrence: US)
  Receive Date: 20211214
  Receipt Date: 20211214
  Transmission Date: 20220303
  Serious: Yes (Other)
  Sender: FDA-Public Use
  Company Number: US-SA-SAC20211204000021

PATIENT
  Sex: Female

DRUGS (10)
  1. AUBAGIO [Suspect]
     Active Substance: TERIFLUNOMIDE
     Indication: Multiple sclerosis
     Dosage: 14 MG, QD
     Route: 048
  2. COPAXONE [Concomitant]
     Active Substance: GLATIRAMER ACETATE
  3. KRILL OIL [Concomitant]
     Active Substance: DIETARY SUPPLEMENT\KRILL OIL
  4. ARGININE [Concomitant]
     Active Substance: ARGININE
  5. VITAMIN B COMPLEX [Concomitant]
     Active Substance: CYANOCOBALAMIN\DEXPANTHENOL\NIACINAMIDE\PYRIDOXINE HYDROCHLORIDE\RIBOFLAVIN 5^-PHOSPHATE SODIUM\THIA
  6. VITAMIN D2 [Concomitant]
     Active Substance: ERGOCALCIFEROL
     Dosage: 1250MC
  7. MAGNESIUM [Concomitant]
     Active Substance: MAGNESIUM
  8. DAILY VITE [ASCORBIC ACID;COLECALCIFEROL;CYANOCOBALAMIN;FOLIC ACID;NIC [Concomitant]
  9. ASIAN GINSENG [Concomitant]
     Active Substance: ASIAN GINSENG
  10. GINKGO [GINKGO BILOBA EXTRACT] [Concomitant]

REACTIONS (1)
  - Near death experience [Unknown]
